FAERS Safety Report 12241416 (Version 1)
Quarter: 2016Q2

REPORT INFORMATION
  Report Type: Spontaneous
  Country: US (occurrence: US)
  Receive Date: 20160406
  Receipt Date: 20160406
  Transmission Date: 20160815
  Serious: No
  Sender: FDA-Public Use
  Company Number: US-PFIZER INC-2016167814

PATIENT
  Age: 78 Year

DRUGS (5)
  1. ZAROXOLYN [Suspect]
     Active Substance: METOLAZONE
     Dosage: UNK
  2. TEGRETOL [Suspect]
     Active Substance: CARBAMAZEPINE
  3. DILANTIN [Suspect]
     Active Substance: PHENYTOIN
     Dosage: UNK
  4. HYTRIN [Suspect]
     Active Substance: TERAZOSIN HYDROCHLORIDE
  5. DIAMOX SEQUELS [Suspect]
     Active Substance: ACETAZOLAMIDE

REACTIONS (1)
  - Drug hypersensitivity [Unknown]
